FAERS Safety Report 22115443 (Version 1)
Quarter: 2023Q1

REPORT INFORMATION
  Report Type: Report from Study
  Country: CO (occurrence: CO)
  Receive Date: 20230320
  Receipt Date: 20230320
  Transmission Date: 20230418
  Serious: Yes (Hospitalization)
  Sender: FDA-Public Use
  Company Number: CO-BAYER-2023A015427

PATIENT
  Age: 66 Year
  Sex: Female

DRUGS (11)
  1. RIVAROXABAN [Suspect]
     Active Substance: RIVAROXABAN
     Indication: Atrial fibrillation
     Dosage: 20 MG, QD
     Route: 048
     Dates: start: 20180101
  2. OXYGEN [Concomitant]
     Active Substance: OXYGEN
  3. LEVOTHYROXINE [Concomitant]
     Active Substance: LEVOTHYROXINE
  4. ESOMEPRAZOLE [Concomitant]
     Active Substance: ESOMEPRAZOLE
  5. FUROSEMIDE [Concomitant]
     Active Substance: FUROSEMIDE
  6. CARVEDILOL [Concomitant]
     Active Substance: CARVEDILOL
  7. LOSARTAN [Concomitant]
     Active Substance: LOSARTAN
  8. PREGABALIN [Concomitant]
     Active Substance: PREGABALIN
  9. SPIRONOLACTONE [Concomitant]
     Active Substance: SPIRONOLACTONE
  10. ATORVASTATIN [Concomitant]
     Active Substance: ATORVASTATIN
  11. ACETAMINOPHEN [Concomitant]
     Active Substance: ACETAMINOPHEN

REACTIONS (13)
  - Pain [Not Recovered/Not Resolved]
  - Biliary catheter insertion [Unknown]
  - Congestive hepatopathy [Unknown]
  - Oedema peripheral [Unknown]
  - Hypotension [Unknown]
  - Malaise [Not Recovered/Not Resolved]
  - Myalgia [Not Recovered/Not Resolved]
  - Pain [Not Recovered/Not Resolved]
  - COVID-19 [Recovered/Resolved]
  - COVID-19 [Unknown]
  - COVID-19 [Unknown]
  - Colonoscopy [Unknown]
  - Nausea [Not Recovered/Not Resolved]

NARRATIVE: CASE EVENT DATE: 20190801
